FAERS Safety Report 6380805-0 (Version None)
Quarter: 2009Q3

REPORT INFORMATION
  Report Type: 
  Country: None (occurrence: None)
  Receive Date: 20090929
  Receipt Date: 20090924
  Transmission Date: 20100115
  Serious: Yes (Hospitalization)
  Sender: FDA-Public Use
  Company Number: JP-BAYER-200913529BYL

PATIENT
  Age: 64 Year
  Sex: Male
  Weight: 70 kg

DRUGS (11)
  1. NEXAVAR [Suspect]
     Indication: RENAL CELL CARCINOMA STAGE IV
     Dosage: UNIT DOSE: 200 MG
     Route: 048
     Dates: start: 20080623, end: 20080717
  2. NEXAVAR [Suspect]
     Dosage: UNIT DOSE: 200 MG
     Route: 048
     Dates: start: 20080718, end: 20080813
  3. NEXAVAR [Suspect]
     Dosage: UNIT DOSE: 200 MG
     Route: 048
     Dates: start: 20080814, end: 20081014
  4. NEXAVAR [Suspect]
     Dosage: UNIT DOSE: 200 MG
     Route: 048
     Dates: start: 20081031, end: 20090604
  5. NEXAVAR [Suspect]
     Dosage: UNIT DOSE: 200 MG
     Route: 048
     Dates: start: 20090620, end: 20090712
  6. OLMETEC [Concomitant]
     Route: 048
     Dates: start: 20080623
  7. ALLOPURINOL [Concomitant]
     Route: 048
     Dates: start: 20080623
  8. ATELEC [Concomitant]
     Route: 048
     Dates: start: 20080623
  9. SOLU-CORTEF [Concomitant]
     Route: 042
     Dates: start: 20081128, end: 20081219
  10. IMUNACE [Concomitant]
     Route: 042
     Dates: start: 20081128, end: 20081219
  11. IMUNACE [Concomitant]
     Route: 042
     Dates: start: 20090305, end: 20090403

REACTIONS (4)
  - CEREBRAL INFARCTION [None]
  - DIARRHOEA [None]
  - HYPOPHOSPHATAEMIA [None]
  - PALMAR-PLANTAR ERYTHRODYSAESTHESIA SYNDROME [None]
